FAERS Safety Report 12904824 (Version 15)
Quarter: 2018Q4

REPORT INFORMATION
  Report Type: Report from Study
  Country: US (occurrence: US)
  Receive Date: 20161102
  Receipt Date: 20181212
  Transmission Date: 20190204
  Serious: Yes (Death, Hospitalization)
  Sender: FDA-Public Use
  Company Number: US-ACTELION-A-US2016-144741

PATIENT
  Age: 30 Year
  Sex: Male
  Weight: 73.92 kg

DRUGS (15)
  1. VELETRI [Suspect]
     Active Substance: EPOPROSTENOL
     Dosage: 74 NG/KG, PER MIN
     Route: 042
     Dates: start: 2011
  2. ADCIRCA [Concomitant]
     Active Substance: TADALAFIL
     Dosage: 40 MG, QD
     Dates: start: 2013
  3. ADVAIR HFA [Concomitant]
     Active Substance: FLUTICASONE PROPIONATE\SALMETEROL XINAFOATE
  4. PROAIR HFA [Concomitant]
     Active Substance: ALBUTEROL SULFATE
     Dosage: UNK
  5. VELETRI [Suspect]
     Active Substance: EPOPROSTENOL
     Dosage: 88 NG/KG, PER MIN
     Route: 042
     Dates: start: 20100713
  6. OPSUMIT [Suspect]
     Active Substance: MACITENTAN
     Indication: PULMONARY ARTERIAL HYPERTENSION
     Dosage: 10 MG, QD
     Route: 048
     Dates: start: 20151015
  7. OXYGEN. [Concomitant]
     Active Substance: OXYGEN
     Dosage: 6 L, PER MIN
  8. PROGESTERONE. [Concomitant]
     Active Substance: PROGESTERONE
     Dosage: UNK
  9. PREMARIN [Concomitant]
     Active Substance: ESTROGENS, CONJUGATED
     Dosage: UNK
  10. XARELTO [Concomitant]
     Active Substance: RIVAROXABAN
     Dosage: 20 MG, UNK
     Dates: start: 20170412
  11. SPIRONOLACTONE. [Concomitant]
     Active Substance: SPIRONOLACTONE
     Dosage: UNK
  12. OMEPRAZOLE. [Concomitant]
     Active Substance: OMEPRAZOLE
     Dosage: UNK
  13. VELETRI [Suspect]
     Active Substance: EPOPROSTENOL
     Dosage: 82 NG/KG, PER MIN
     Route: 042
     Dates: start: 20100713
  14. COUMADIN [Concomitant]
     Active Substance: WARFARIN SODIUM
  15. VELETRI [Suspect]
     Active Substance: EPOPROSTENOL
     Indication: PULMONARY ARTERIAL HYPERTENSION
     Dosage: 83 NG/KG, PER MIN
     Route: 042
     Dates: start: 20100713

REACTIONS (28)
  - Pulmonary arterial hypertension [Fatal]
  - Pulmonary hypertension [Unknown]
  - Hypoxia [Unknown]
  - Pericardial effusion [Unknown]
  - Fluid retention [Unknown]
  - Abscess drainage [Unknown]
  - Acute respiratory failure [Unknown]
  - Device breakage [Recovered/Resolved]
  - Device occlusion [Recovered/Resolved]
  - Peripheral swelling [Unknown]
  - Dyspnoea [Unknown]
  - Oedema peripheral [Recovering/Resolving]
  - Device alarm issue [Recovered/Resolved]
  - Nasopharyngitis [Unknown]
  - Deep vein thrombosis [Unknown]
  - Abscess [Unknown]
  - Chest pain [Unknown]
  - HIV test positive [Unknown]
  - Hospitalisation [Unknown]
  - Hospice care [Unknown]
  - Catheter management [Unknown]
  - Sleep apnoea syndrome [Unknown]
  - Tobacco user [Unknown]
  - Back pain [Unknown]
  - Thrombocytopenia [Unknown]
  - Thrombosis in device [Recovered/Resolved]
  - Trans-sexualism [Unknown]
  - Abdominal pain [Unknown]

NARRATIVE: CASE EVENT DATE: 20170315
